FAERS Safety Report 6120988-0 (Version None)
Quarter: 2009Q1

REPORT INFORMATION
  Report Type: 
  Country: None (occurrence: None)
  Receive Date: 20090312
  Receipt Date: 20090227
  Transmission Date: 20090719
  Serious: Yes (Other)
  Sender: FDA-Public Use
  Company Number: 2009SP004711

PATIENT
  Age: 23 Year
  Sex: Female
  Weight: 67 kg

DRUGS (1)
  1. COPPERTONE LOTION SPF 15 (OCTINOXATE/OXYBENZONE) [Suspect]
     Indication: PROPHYLAXIS AGAINST SOLAR RADIATION
     Dosage: QD; TOP
     Route: 061
     Dates: start: 20090208, end: 20090208

REACTIONS (9)
  - DERMATITIS CONTACT [None]
  - DRUG INEFFECTIVE [None]
  - EMOTIONAL DISORDER [None]
  - ERYTHEMA [None]
  - PRURITUS [None]
  - RASH MACULAR [None]
  - RASH PAPULAR [None]
  - SKIN BURNING SENSATION [None]
  - SKIN EXFOLIATION [None]
